FAERS Safety Report 6643285-3 (Version None)
Quarter: 2010Q1

REPORT INFORMATION
  Report Type: 
  Country: None (occurrence: None)
  Receive Date: 20100319
  Receipt Date: 20100310
  Transmission Date: 20100710
  Serious: Yes (Hospitalization)
  Sender: FDA-Public Use
  Company Number: GXKR2010GR02870

PATIENT
  Age: 60 Year
  Sex: Female

DRUGS (5)
  1. RIBAVIRIN (NGX) [Suspect]
     Indication: HEPATITIS C
     Dosage: UNK
     Route: 065
     Dates: start: 20070101, end: 20070701
  2. PEGINTERFERON ALFA-2A [Suspect]
     Indication: HEPATITIS C
     Dosage: UNK
     Route: 065
     Dates: start: 20070701, end: 20070701
  3. MEPREDNISONE [Suspect]
     Indication: HAEMOLYTIC ANAEMIA
     Dosage: 16 MG, 2 X 3 PER DAY
     Route: 065
  4. MEPREDNISONE [Suspect]
     Dosage: 64 MG/DAY
     Route: 065
  5. CORTICOSTEROID NOS [Suspect]
     Indication: HAEMOLYTIC ANAEMIA

REACTIONS (3)
  - ANAEMIA HAEMOLYTIC AUTOIMMUNE [None]
  - HAEMOGLOBINURIA [None]
  - HYPOTHYROIDISM [None]
